FAERS Safety Report 14973283 (Version 1)
Quarter: 2018Q2

REPORT INFORMATION
  Report Type: Spontaneous
  Country: FR (occurrence: FR)
  Receive Date: 20180605
  Receipt Date: 20180605
  Transmission Date: 20180711
  Serious: Yes (Life-Threatening, Other)
  Sender: FDA-Public Use
  Company Number: FR-GLAXOSMITHKLINE-FR2018097058

PATIENT
  Age: 54 Year
  Sex: Female

DRUGS (4)
  1. ZINNAT [Suspect]
     Active Substance: CEFUROXIME AXETIL
     Indication: NASOPHARYNGITIS
     Dosage: UNK
     Route: 048
  2. ZINNAT [Suspect]
     Active Substance: CEFUROXIME AXETIL
     Dosage: UNK UNK, SINGLE
     Route: 048
  3. SEROPRAM [Concomitant]
     Indication: PRODUCT USED FOR UNKNOWN INDICATION
     Dosage: UNK
     Route: 065
  4. STREFEN [Suspect]
     Active Substance: FLURBIPROFEN
     Indication: PRODUCT USED FOR UNKNOWN INDICATION
     Dosage: 8.75 MG, SINGLE
     Route: 048

REACTIONS (14)
  - Pruritus [Unknown]
  - Burning sensation mucosal [Unknown]
  - Dizziness [Unknown]
  - Anaphylactic reaction [Unknown]
  - Malaise [Unknown]
  - Cyanosis [Unknown]
  - Blood pressure decreased [Recovered/Resolved]
  - Vomiting [Unknown]
  - Livedo reticularis [Unknown]
  - Lip oedema [Unknown]
  - Throat irritation [Unknown]
  - Tachycardia [Unknown]
  - Anaphylactic shock [Recovered/Resolved]
  - Gingival oedema [Unknown]

NARRATIVE: CASE EVENT DATE: 2014
